FAERS Safety Report 18241773 (Version 1)
Quarter: 2020Q3

REPORT INFORMATION
  Report Type: Spontaneous
  Country: US (occurrence: US)
  Receive Date: 20200908
  Receipt Date: 20200908
  Transmission Date: 20201103
  Serious: Yes (Other)
  Sender: FDA-Public Use
  Company Number: US-ROCHE-2673152

PATIENT
  Age: 73 Year
  Sex: Female

DRUGS (2)
  1. AVASTIN [Suspect]
     Active Substance: BEVACIZUMAB
     Indication: OVARIAN CANCER
     Route: 042
     Dates: start: 201911, end: 202008
  2. RUBRACA [Suspect]
     Active Substance: RUCAPARIB CAMSYLATE
     Indication: OVARIAN CANCER
     Dosage: ONGOING: YES
     Route: 048
     Dates: start: 20191112

REACTIONS (24)
  - Nausea [Not Recovered/Not Resolved]
  - Fatigue [Recovering/Resolving]
  - Pyrexia [Recovered/Resolved]
  - Chills [Recovered/Resolved]
  - Lethargy [Unknown]
  - Headache [Unknown]
  - Glossodynia [Not Recovered/Not Resolved]
  - Oral pain [Not Recovered/Not Resolved]
  - Malignant neoplasm progression [Unknown]
  - Decreased appetite [Recovering/Resolving]
  - Tremor [Unknown]
  - Abdominal discomfort [Unknown]
  - Cough [Recovered/Resolved]
  - Protein urine present [Unknown]
  - Drug ineffective [Unknown]
  - Chest pain [Unknown]
  - Dry mouth [Not Recovered/Not Resolved]
  - Platelet count decreased [Unknown]
  - Taste disorder [Not Recovered/Not Resolved]
  - Vitamin B12 decreased [Unknown]
  - Tumour marker increased [Unknown]
  - Pain [Recovered/Resolved]
  - Vitamin B complex deficiency [Unknown]
  - Weight decreased [Unknown]

NARRATIVE: CASE EVENT DATE: 202001
